FAERS Safety Report 7191227-7 (Version None)
Quarter: 2010Q4

REPORT INFORMATION
  Report Type: 
  Country: None (occurrence: None)
  Receive Date: 20101223
  Receipt Date: 20101217
  Transmission Date: 20110411
  Serious: Yes (Hospitalization)
  Sender: FDA-Public Use
  Company Number: US-ROCHE-738084

PATIENT
  Sex: Female
  Weight: 68 kg

DRUGS (18)
  1. TRASTUZUMAB [Suspect]
     Dosage: LOADING DOSE
     Route: 042
  2. TRASTUZUMAB [Suspect]
     Dosage: FORM: VIAL, DOSE LEVEL : 6 MG/KG, LAST DOSE PRIOR TO SAE ON 29 NOV 2010
     Route: 042
     Dates: start: 20100816
  3. BEVACIZUMAB [Suspect]
     Dosage: FORM: VIAL, DOSE LEVEL : 15 MG/KG, LAST DOSE PRIOR TO SAE ON 29 NOV 2010
     Route: 042
     Dates: start: 20100816
  4. DOCETAXEL [Suspect]
     Dosage: FORM: VIAL, DOSE LEVEL : 60 MG/M2, LAST DOSE PRIOR TO SAE ON 29 NOV  2010
     Route: 042
     Dates: start: 20100816
  5. CARBOPLATIN [Suspect]
     Dosage: FORM: VIAL, DOSE LEVEL : 6 AUC, LAST DOSE PRIOR TO SAE ON 29 OCT 2010
     Route: 042
     Dates: start: 20100816
  6. CARBOPLATIN [Suspect]
     Dosage: DOSE LEVEL: 5 AUC
     Route: 042
     Dates: start: 20101108
  7. OMEPRAZOLE [Concomitant]
     Dates: start: 20020101
  8. TRAZODONE [Concomitant]
     Dates: start: 20040101
  9. ALLEGRA [Concomitant]
     Dates: start: 20050101
  10. VITAMIN D [Concomitant]
     Dates: start: 20020101
  11. FERROUS SULFATE TAB [Concomitant]
     Dates: start: 20020101
  12. VITAMIN B-12 [Concomitant]
     Dates: start: 20020101
  13. FISH OIL [Concomitant]
     Dates: start: 20020101
  14. DECADRON [Concomitant]
     Dosage: DRUG: DECADRON 1 TAB860X 3 DAYS
     Dates: start: 20101017, end: 20101020
  15. ZOFRAN [Concomitant]
     Dates: start: 20100816
  16. COMPAZINE [Concomitant]
     Dates: start: 20100816
  17. AMLODIPINE [Concomitant]
     Dates: start: 20100901
  18. NEULASTA [Concomitant]
     Dates: start: 20101110, end: 20101110

REACTIONS (6)
  - DEHYDRATION [None]
  - FEBRILE NEUTROPENIA [None]
  - NAUSEA [None]
  - NEUTROPENIA [None]
  - SYNCOPE [None]
  - VOMITING [None]
